FAERS Safety Report 19593692 (Version 1)
Quarter: 2021Q3

REPORT INFORMATION
  Report Type: Spontaneous
  Country: DE (occurrence: DE)
  Receive Date: 20210722
  Receipt Date: 20210722
  Transmission Date: 20211014
  Serious: Yes (Other)
  Sender: FDA-Public Use
  Company Number: DE-DRREDDYS-SPO/GER/21/0137875

PATIENT
  Age: 33 Year
  Sex: Male
  Weight: 80 kg

DRUGS (7)
  1. QUETIAPINE. [Interacting]
     Active Substance: QUETIAPINE
     Dosage: AB HIER AUFTRETEN DER UAW(FROM HERE OCCURRENCE OF THE ADR)
     Dates: start: 20200629, end: 20200917
  2. QUETIAPINE. [Interacting]
     Active Substance: QUETIAPINE
     Dosage: B.A.W.
     Dates: start: 20200625, end: 20200628
  3. ATOMOXETINE. [Interacting]
     Active Substance: ATOMOXETINE HYDROCHLORIDE
     Dosage: AB HIER AUFTRETEN DER UAW (FROM HERE OCCURRENCE OF THE ADR)
     Dates: start: 20200625, end: 20200910
  4. QUETIAPINE. [Interacting]
     Active Substance: QUETIAPINE
     Dates: start: 20200918
  5. ATOMOXETINE. [Interacting]
     Active Substance: ATOMOXETINE HYDROCHLORIDE
     Indication: PRODUCT USED FOR UNKNOWN INDICATION
     Dates: start: 20200619, end: 20200623
  6. ATOMOXETINE. [Interacting]
     Active Substance: ATOMOXETINE HYDROCHLORIDE
     Dates: start: 20200624, end: 20200624
  7. QUETIAPINE. [Suspect]
     Active Substance: QUETIAPINE
     Indication: PRODUCT USED FOR UNKNOWN INDICATION
     Dates: start: 20200622, end: 20200624

REACTIONS (2)
  - Pollakiuria [Recovered/Resolved]
  - Dysuria [Recovered/Resolved]

NARRATIVE: CASE EVENT DATE: 20200703
